FAERS Safety Report 9841888 (Version 1)
Quarter: 2013Q4

REPORT INFORMATION
  Report Type: Spontaneous
  Country: US (occurrence: None)
  Receive Date: 20131211
  Receipt Date: 20131211
  Transmission Date: 20140711
  Serious: Yes (Hospitalization)
  Sender: FDA-Public Use
  Company Number: TKT01200600210

PATIENT
  Age: 6 Year
  Sex: Male
  Weight: 31.8 kg

DRUGS (5)
  1. IDURSULFASE (IDURSULFASE) (0.5 MILLIGRAM(S)/KILOGRAM, CONCENTRATE FOR SOLUTION FOR INSUFION) (IDURSULFASE) [Suspect]
     Indication: MUCOPOLYSACCHARIDOSIS II
     Route: 042
     Dates: start: 20061019
  2. ADDERALL XR (OBETROL) [Concomitant]
  3. RISPERDAL (RISPERIDONE) [Concomitant]
  4. ZYRTEC (CETIRIZINE HYDROCHLORIDE) [Concomitant]
  5. AUGMENTION (CLAVULIN) [Concomitant]

REACTIONS (6)
  - Flushing [None]
  - Drug eruption [None]
  - Agitation [None]
  - Heart rate increased [None]
  - Infusion related reaction [None]
  - Swelling face [None]
